FAERS Safety Report 8298448-0 (Version None)
Quarter: 2012Q2

REPORT INFORMATION
  Report Type: 
  Country: None (occurrence: None)
  Receive Date: 20120417
  Receipt Date: 20120402
  Transmission Date: 20120825
  Serious: Yes (Congenital Anomaly)
  Sender: FDA-Public Use
  Company Number: 2012MA004554

PATIENT
  Sex: Female

DRUGS (4)
  1. CARBAMAZEPINE [Suspect]
     Indication: FOETAL EXPOSURE DURING PREGNANCY
     Dosage: TRPL
     Route: 064
  2. ZONISAMIDE [Suspect]
     Indication: FOETAL EXPOSURE DURING PREGNANCY
     Dosage: TRPL
     Route: 064
  3. PHENOBARBITAL TAB [Suspect]
     Indication: FOETAL EXPOSURE DURING PREGNANCY
     Dosage: TRPL
     Route: 064
  4. CLOBAZAM (CLOBAZAM) [Suspect]
     Indication: FOETAL EXPOSURE DURING PREGNANCY
     Dosage: TRPL
     Route: 064

REACTIONS (8)
  - MATERNAL DRUGS AFFECTING FOETUS [None]
  - HYPOGLYCAEMIA NEONATAL [None]
  - ANAL ATRESIA [None]
  - GASTROINTESTINAL DISORDER CONGENITAL [None]
  - MICROCEPHALY [None]
  - URINARY TRACT MALFORMATION [None]
  - EPILEPSY CONGENITAL [None]
  - CONGENITAL TRACHEOMALACIA [None]
